FAERS Safety Report 5087473-9 (Version None)
Quarter: 2006Q3

REPORT INFORMATION
  Report Type: 
  Country: None (occurrence: None)
  Receive Date: 20060823
  Receipt Date: 20060823
  Transmission Date: 20061208
  Serious: Yes (Other)
  Sender: FDA-Public Use
  Company Number: None

PATIENT
  Sex: Male
  Weight: 74.8435 kg

DRUGS (1)
  1. DICLOXACILLIN [Suspect]

REACTIONS (2)
  - ORAL CANDIDIASIS [None]
  - ORAL DISCOMFORT [None]
